FAERS Safety Report 16636786 (Version 1)
Quarter: 2019Q3

REPORT INFORMATION
  Report Type: Spontaneous
  Country: US (occurrence: US)
  Receive Date: 20190725
  Receipt Date: 20190725
  Transmission Date: 20191004
  Serious: Yes (Hospitalization, Other)
  Sender: FDA-Public Use
  Company Number: None

PATIENT
  Age: 75 Year
  Sex: Male
  Weight: 79.38 kg

DRUGS (1)
  1. VOTRIENT [Suspect]
     Active Substance: PAZOPANIB HYDROCHLORIDE
     Route: 048
     Dates: start: 20190531, end: 20190626

REACTIONS (3)
  - Renal impairment [None]
  - Blood pressure increased [None]
  - Oedema peripheral [None]

NARRATIVE: CASE EVENT DATE: 20190626
